FAERS Safety Report 4336066-7 (Version None)
Quarter: 2004Q1

REPORT INFORMATION
  Report Type: 
  Country: None (occurrence: None)
  Receive Date: 20040326
  Receipt Date: 20031203
  Transmission Date: 20041129
  Serious: Yes (Life-Threatening, Hospitalization, Other)
  Sender: FDA-Public Use
  Company Number: WAES 0312USA00397

PATIENT
  Age: 40 Year
  Sex: Female
  Weight: 119.7496 kg

DRUGS (4)
  1. INVANZ [Suspect]
     Indication: CELLULITIS
     Dosage: 1.0 GM/DAILY/IV
     Route: 042
     Dates: start: 20030606, end: 20031104
  2. AMBIEN [Concomitant]
  3. CHROMAGEN CAPSULES [Concomitant]
  4. VICODIN ES [Concomitant]

REACTIONS (1)
  - CONVULSION [None]
